FAERS Safety Report 8183679-0 (Version None)
Quarter: 2012Q1

REPORT INFORMATION
  Report Type: 
  Country: None (occurrence: None)
  Receive Date: 20120305
  Receipt Date: 20120223
  Transmission Date: 20120608
  Serious: Yes (Other)
  Sender: FDA-Public Use
  Company Number: US-SANOFI-AVENTIS-2012SA012441

PATIENT
  Age: 98 Year
  Sex: Female

DRUGS (10)
  1. SYNTHROID [Concomitant]
     Dates: end: 20120126
  2. CIPROFLOXACIN [Concomitant]
     Dates: start: 20120126
  3. NORCO [Concomitant]
     Dates: start: 20120126
  4. LEVOTHYROXINE SODIUM [Concomitant]
     Dates: start: 20120126
  5. SENOKOT /UNK/ [Concomitant]
     Dates: start: 20120126
  6. NITRO-BID [Concomitant]
     Dates: start: 20120126
  7. WARFARIN SODIUM [Suspect]
     Dates: start: 20120126
  8. PRINIVIL [Concomitant]
     Dates: start: 20120126
  9. LOVENOX [Suspect]
     Route: 058
     Dates: start: 20120126
  10. COREG [Concomitant]
     Dates: start: 20120126

REACTIONS (6)
  - PAIN IN EXTREMITY [None]
  - CHEST PAIN [None]
  - APHASIA [None]
  - ABNORMAL BEHAVIOUR [None]
  - ESCHERICHIA URINARY TRACT INFECTION [None]
  - CAPILLARY FRAGILITY [None]
